FAERS Safety Report 6240372-9 (Version None)
Quarter: 2009Q2

REPORT INFORMATION
  Report Type: 
  Country: None (occurrence: None)
  Receive Date: 20090623
  Receipt Date: 20080828
  Transmission Date: 20091009
  Serious: No
  Sender: FDA-Public Use
  Company Number: US-ASTRAZENECA-2008UW17891

PATIENT
  Age: 80 Year
  Sex: Male
  Weight: 78 kg

DRUGS (3)
  1. PULMICORT RESPULES [Suspect]
     Indication: CHRONIC OBSTRUCTIVE PULMONARY DISEASE
     Dosage: 0.5 MG/2 ML TWICE DAILY
     Route: 055
     Dates: start: 20080601
  2. DUONEB [Concomitant]
     Dates: start: 20080601
  3. COMBIVENT [Concomitant]

REACTIONS (1)
  - INCREASED TENDENCY TO BRUISE [None]
